FAERS Safety Report 7249530-8 (Version None)
Quarter: 2011Q1

REPORT INFORMATION
  Report Type: 
  Country: None (occurrence: None)
  Receive Date: 20110121
  Receipt Date: 20110121
  Transmission Date: 20110831
  Serious: Yes (Hospitalization)
  Sender: FDA-Public Use
  Company Number: None

PATIENT
  Age: 59 Year
  Sex: Male
  Weight: 81 kg

DRUGS (1)
  1. GEMCITABINE [Suspect]
     Dosage: 2100 MG QWEEK IV
     Route: 042
     Dates: start: 20091215, end: 20100728

REACTIONS (12)
  - SPUTUM DISCOLOURED [None]
  - SPEECH DISORDER [None]
  - MEMORY IMPAIRMENT [None]
  - PYREXIA [None]
  - LUNG NEOPLASM [None]
  - DISORIENTATION [None]
  - LYMPHADENOPATHY [None]
  - LEUKOCYTOSIS [None]
  - MENTAL STATUS CHANGES [None]
  - PRODUCTIVE COUGH [None]
  - DYSPNOEA [None]
  - CONFUSIONAL STATE [None]
